FAERS Safety Report 9757491 (Version 1)
Quarter: 2013Q4

REPORT INFORMATION
  Report Type: Report from Study
  Country: ID (occurrence: ID)
  Receive Date: 20131215
  Receipt Date: 20131215
  Transmission Date: 20140711
  Serious: Yes (Other)
  Sender: FDA-Public Use
  Company Number: ID-ROCHE-1320381

PATIENT
  Sex: Female

DRUGS (1)
  1. HERCEPTIN [Suspect]
     Indication: BREAST CANCER
     Route: 065

REACTIONS (1)
  - Haematuria [Unknown]
